FAERS Safety Report 12969741 (Version 1)
Quarter: 2016Q4

REPORT INFORMATION
  Report Type: Spontaneous
  Country: US (occurrence: US)
  Receive Date: 20161123
  Receipt Date: 20161123
  Transmission Date: 20170207
  Serious: No
  Sender: FDA-Public Use
  Company Number: US-PERRIGO-16US016740

PATIENT
  Age: 52 Year
  Sex: Male
  Weight: 81.63 kg

DRUGS (2)
  1. NICOTINE POLACRILEX [Suspect]
     Active Substance: NICOTINE
     Dosage: 2 MG, TWICE
     Route: 002
     Dates: start: 20160531, end: 20160531
  2. NICOTINE POLACRILEX [Suspect]
     Active Substance: NICOTINE
     Indication: SMOKING CESSATION THERAPY
     Dosage: 2 MG, SIX TIMES DAILY
     Route: 002
     Dates: start: 201602, end: 20160530

REACTIONS (2)
  - Oral discomfort [Recovered/Resolved]
  - Lip dry [Not Recovered/Not Resolved]

NARRATIVE: CASE EVENT DATE: 20160531
